FAERS Safety Report 5946080-3 (Version None)
Quarter: 2008Q4

REPORT INFORMATION
  Report Type: 
  Country: None (occurrence: None)
  Receive Date: 20081110
  Receipt Date: 20081030
  Transmission Date: 20090506
  Serious: Yes (Death, Hospitalization)
  Sender: FDA-Public Use
  Company Number: ES-AMGEN-US317970

PATIENT
  Age: 34 Year
  Sex: Male

DRUGS (3)
  1. ENBREL [Suspect]
     Indication: PSORIATIC ARTHROPATHY
     Dosage: UNSPECIFIED
  2. DEFLAZACORT [Concomitant]
  3. INDOMETHACIN [Concomitant]

REACTIONS (2)
  - HEPATIC FAILURE [None]
  - PULMONARY FIBROSIS [None]
